FAERS Safety Report 23742889 (Version 2)
Quarter: 2024Q2

REPORT INFORMATION
  Report Type: Report from Study
  Country: CO (occurrence: CO)
  Receive Date: 20240415
  Receipt Date: 20240523
  Transmission Date: 20240715
  Serious: Yes (Hospitalization)
  Sender: FDA-Public Use
  Company Number: CO-AMGEN-COLSL2024073731

PATIENT
  Age: 48 Year
  Sex: Female

DRUGS (2)
  1. NPLATE [Suspect]
     Active Substance: ROMIPLOSTIM
     Indication: Immune thrombocytopenia
     Dosage: 250 MICROGRAM, QWK
     Route: 058
     Dates: start: 20150506
  2. NPLATE [Suspect]
     Active Substance: ROMIPLOSTIM
     Dosage: UNK
     Route: 058

REACTIONS (1)
  - Platelet count increased [Recovered/Resolved]

NARRATIVE: CASE EVENT DATE: 20240301
